FAERS Safety Report 16354305 (Version 1)
Quarter: 2019Q2

REPORT INFORMATION
  Report Type: Report from Study
  Country: US (occurrence: US)
  Receive Date: 20190524
  Receipt Date: 20190524
  Transmission Date: 20190711
  Serious: Yes (Hospitalization)
  Sender: FDA-Public Use
  Company Number: US-JNJFOC-20190524945

PATIENT
  Sex: Female

DRUGS (22)
  1. STELARA [Suspect]
     Active Substance: USTEKINUMAB
     Indication: PSORIASIS
     Route: 058
     Dates: start: 20190302
  2. SYMBICORT [Concomitant]
     Active Substance: BUDESONIDE\FORMOTEROL FUMARATE DIHYDRATE
     Route: 065
  3. QUETIAPINE FUMARATE. [Concomitant]
     Active Substance: QUETIAPINE FUMARATE
     Route: 065
  4. CLOBETASOL PROPIONATE. [Concomitant]
     Active Substance: CLOBETASOL PROPIONATE
     Route: 065
  5. BUPROPION HCL [Concomitant]
     Active Substance: BUPROPION HYDROCHLORIDE
     Route: 065
  6. FLUCONAZOLE. [Concomitant]
     Active Substance: FLUCONAZOLE
     Route: 065
  7. BIOTIN [Concomitant]
     Active Substance: BIOTIN
     Route: 048
  8. CALCIPOTRIENE. [Concomitant]
     Active Substance: CALCIPOTRIENE
     Route: 065
  9. CINNAMON. [Concomitant]
     Active Substance: CINNAMON
     Route: 048
  10. FLUTICASONE. [Concomitant]
     Active Substance: FLUTICASONE
     Route: 065
  11. TRIHEXYPHENIDYL HCL [Concomitant]
     Active Substance: TRIHEXYPHENIDYL HYDROCHLORIDE
     Route: 065
  12. SIMVASTATIN. [Concomitant]
     Active Substance: SIMVASTATIN
     Route: 065
  13. SALBUTAMOL [Concomitant]
     Active Substance: ALBUTEROL
     Route: 065
  14. SPIRIVA [Concomitant]
     Active Substance: TIOTROPIUM BROMIDE MONOHYDRATE
     Route: 065
  15. AMOXICILLIN. [Concomitant]
     Active Substance: AMOXICILLIN
     Route: 065
  16. METFORMIN [Concomitant]
     Active Substance: METFORMIN HYDROCHLORIDE
     Route: 065
  17. DEPAKOTE [Concomitant]
     Active Substance: DIVALPROEX SODIUM
     Route: 065
  18. OMEPRAZOLE. [Concomitant]
     Active Substance: OMEPRAZOLE
     Route: 065
  19. RISPERIDONE. [Concomitant]
     Active Substance: RISPERIDONE
     Route: 065
  20. DOXYCYCLINE HYCLATE. [Concomitant]
     Active Substance: DOXYCYCLINE HYCLATE
     Route: 065
  21. NASONEX [Concomitant]
     Active Substance: MOMETASONE FUROATE
     Route: 065
  22. NICORETTE [Concomitant]
     Active Substance: NICOTINE
     Route: 048

REACTIONS (1)
  - Colonoscopy [Not Recovered/Not Resolved]
